FAERS Safety Report 5381022-3 (Version None)
Quarter: 2007Q2

REPORT INFORMATION
  Report Type: 
  Country: None (occurrence: None)
  Receive Date: 20070629
  Receipt Date: 20061116
  Transmission Date: 20071010
  Serious: Yes (Hospitalization)
  Sender: FDA-Public Use
  Company Number: US200611004007

PATIENT
  Age: 76 Year
  Sex: Female

DRUGS (6)
  1. ILETIN [Suspect]
  2. ILETIN [Suspect]
  3. HUMALOG [Suspect]
     Dosage: AS NEEDED
     Dates: start: 20061101
  4. LANTUS [Concomitant]
  5. GLYBURIDE [Concomitant]
  6. NOVOLOG [Concomitant]

REACTIONS (5)
  - BLOOD GLUCOSE INCREASED [None]
  - DRUG HYPERSENSITIVITY [None]
  - HEADACHE [None]
  - THERAPY REGIMEN CHANGED [None]
  - VISION BLURRED [None]
